FAERS Safety Report 10190572 (Version 2)
Quarter: 2014Q2

REPORT INFORMATION
  Report Type: Spontaneous
  Country: US (occurrence: US)
  Receive Date: 20140523
  Receipt Date: 20140616
  Transmission Date: 20141212
  Serious: No
  Sender: FDA-Public Use
  Company Number: US-009507513-1405USA011644

PATIENT
  Sex: Female
  Weight: 106.58 kg

DRUGS (8)
  1. OXYTROL FOR WOMEN [Suspect]
     Indication: MICTURITION URGENCY
     Dosage: UNK, UNKNOWN
     Route: 062
     Dates: start: 201402
  2. OXYTROL FOR WOMEN [Suspect]
     Dosage: UNK, UNKNOWN
     Route: 062
     Dates: start: 201402
  3. ZOLOFT [Concomitant]
     Indication: ANXIETY
     Dosage: UNK, UNKNOWN
  4. ZOLOFT [Concomitant]
     Indication: DEPRESSION
  5. XANAX [Concomitant]
     Indication: ANXIETY
     Dosage: UNK, UNKNOWN
  6. XANAX [Concomitant]
     Indication: DEPRESSION
  7. TAMOXIFEN CITRATE [Concomitant]
     Indication: NEOPLASM MALIGNANT
     Dosage: UNK, UNKNOWN
  8. ARIMIDEX [Concomitant]
     Indication: NEOPLASM MALIGNANT
     Dosage: UNK, UNKNOWN

REACTIONS (3)
  - Adverse drug reaction [Unknown]
  - Somnolence [Not Recovered/Not Resolved]
  - Inappropriate schedule of drug administration [Unknown]
